FAERS Safety Report 6447326-8 (Version None)
Quarter: 2009Q4

REPORT INFORMATION
  Report Type: 
  Country: None (occurrence: None)
  Receive Date: 20091119
  Receipt Date: 20091116
  Transmission Date: 20100525
  Serious: Yes (Other)
  Sender: FDA-Public Use
  Company Number: CHPA2009US22145

PATIENT
  Age: 83 Year
  Sex: Female

DRUGS (8)
  1. 4 WAY FAST ACTING NASAL SPRAY (NCH) [Suspect]
     Indication: NASAL CONGESTION
     Dosage: 1 DF, BID
     Route: 045
     Dates: start: 20091110, end: 20091111
  2. METFORMIN HCL [Concomitant]
  3. LEVOTHYROXINE SODIUM [Concomitant]
  4. DIGOXIN [Concomitant]
  5. METOPROLOL [Concomitant]
  6. AVALIDE [Concomitant]
  7. SERTRALINE HCL [Concomitant]
  8. JANTOVEN [Concomitant]

REACTIONS (6)
  - BLISTER [None]
  - ERYTHEMA [None]
  - SKIN DISORDER [None]
  - SKIN EXFOLIATION [None]
  - SWELLING FACE [None]
  - THERMAL BURN [None]
